FAERS Safety Report 5787638-4 (Version None)
Quarter: 2008Q2

REPORT INFORMATION
  Report Type: 
  Country: None (occurrence: None)
  Receive Date: 20080625
  Receipt Date: 20071004
  Transmission Date: 20081010
  Serious: No
  Sender: FDA-Public Use
  Company Number: US-ASTRAZENECA-2007UW23187

PATIENT
  Age: 4 Year
  Sex: Male

DRUGS (2)
  1. PULMICORT RESPULES [Suspect]
     Indication: ASTHMA
     Dosage: 0.5 MG/2 ML
     Route: 055
     Dates: start: 20070601
  2. SINGULAIR [Concomitant]

REACTIONS (1)
  - SKIN ODOUR ABNORMAL [None]
